FAERS Safety Report 21799871 (Version 2)
Quarter: 2023Q2

REPORT INFORMATION
  Report Type: Spontaneous
  Country: US (occurrence: US)
  Receive Date: 20221230
  Receipt Date: 20230512
  Transmission Date: 20230721
  Serious: Yes (Other)
  Sender: FDA-Public Use
  Company Number: US-PFIZER INC-202201397798

PATIENT
  Age: 50 Year
  Sex: Female

DRUGS (1)
  1. SOLU-MEDROL [Suspect]
     Active Substance: METHYLPREDNISOLONE SODIUM SUCCINATE
     Indication: Pain
     Dosage: UNK
     Route: 042

REACTIONS (2)
  - Hoffmann^s sign [Unknown]
  - Lhermitte^s sign [Not Recovered/Not Resolved]
